FAERS Safety Report 7688021-7 (Version None)
Quarter: 2011Q3

REPORT INFORMATION
  Report Type: 
  Country: None (occurrence: None)
  Receive Date: 20110817
  Receipt Date: 20110812
  Transmission Date: 20111222
  Serious: No
  Sender: FDA-Public Use
  Company Number: US-PFIZER INC-2011186296

PATIENT
  Sex: Female
  Weight: 62.1 kg

DRUGS (1)
  1. PREMARIN [Suspect]
     Dosage: UNK
     Route: 067
     Dates: start: 20110806, end: 20110807

REACTIONS (1)
  - GENITAL BURNING SENSATION [None]
